FAERS Safety Report 4779733-3 (Version None)
Quarter: 2005Q3

REPORT INFORMATION
  Report Type: 
  Country: None (occurrence: None)
  Receive Date: 20050914
  Receipt Date: 20050405
  Transmission Date: 20060218
  Serious: Yes (Death, Hospitalization, Other)
  Sender: FDA-Public Use
  Company Number: 163-20785-04100821

PATIENT
  Age: 68 Year
  Sex: Female
  Weight: 62 kg

DRUGS (2)
  1. THALOMID [Suspect]
     Indication: CHRONIC LYMPHOCYTIC LEUKAEMIA
     Dosage: 200 MG, QHS, ORAL
     Route: 048
     Dates: start: 20040706, end: 20050316
  2. FLUDARABINE PHOSPHATE (FLUDARADINE PHOSPHATE) [Suspect]
     Indication: CHRONIC LYMPHOCYTIC LEUKAEMIA
     Dosage: 25 MG/M2, DAILY FOR 5 DAYS EVERY 28 DAYS, INTRAVENOUS
     Route: 042
     Dates: start: 20040706, end: 20050324

REACTIONS (6)
  - BASAL CELL CARCINOMA [None]
  - DEATH [None]
  - DISEASE PROGRESSION [None]
  - FEBRILE NEUTROPENIA [None]
  - HEPATIC FAILURE [None]
  - HYPERBILIRUBINAEMIA [None]
